FAERS Safety Report 4578537-4 (Version None)
Quarter: 2005Q1

REPORT INFORMATION
  Report Type: 
  Country: None (occurrence: None)
  Receive Date: 20050204
  Receipt Date: 20050204
  Transmission Date: 20050727
  Serious: Yes (Other)
  Sender: FDA-Public Use
  Company Number: None

PATIENT
  Age: 77 Year
  Sex: Male
  Weight: 75 kg

DRUGS (1)
  1. UNASYN [Suspect]
     Indication: PNEUMONIA
     Dosage: 3 GRAM   Q8H   INTRAVENOU
     Route: 042
     Dates: start: 20050129, end: 20050202

REACTIONS (1)
  - HEPATITIS [None]
